FAERS Safety Report 5978818-3 (Version None)
Quarter: 2008Q4

REPORT INFORMATION
  Report Type: 
  Country: None (occurrence: None)
  Receive Date: 20081204
  Receipt Date: 20081125
  Transmission Date: 20090506
  Serious: Yes (Other)
  Sender: FDA-Public Use
  Company Number: PHHY2008JP29832

PATIENT
  Age: 91 Year
  Sex: Female

DRUGS (2)
  1. DIOVAN [Suspect]
     Indication: HYPERTENSION
     Dosage: 80 MG, QD
     Route: 048
     Dates: end: 20081117
  2. BEZATOL - SLOW RELEASE [Concomitant]
     Dosage: 100 MG, UNK
     Route: 048

REACTIONS (3)
  - COLD SWEAT [None]
  - HYPOGLYCAEMIA [None]
  - INCONTINENCE [None]
